FAERS Safety Report 22606330 (Version 1)
Quarter: 2023Q2

REPORT INFORMATION
  Report Type: Spontaneous
  Country: US (occurrence: None)
  Receive Date: 20230614
  Receipt Date: 20230614
  Transmission Date: 20230722
  Serious: No
  Sender: FDA-Public Use
  Company Number: None

PATIENT
  Age: 87 Year
  Sex: Male

DRUGS (24)
  1. PREDNISONE [Suspect]
     Active Substance: PREDNISONE
     Indication: Prostate cancer
     Dosage: FREQUENCY : TWICE A DAY;?
     Route: 048
     Dates: end: 202306
  2. ABIRATERONE ACETATE [Suspect]
     Active Substance: ABIRATERONE ACETATE
     Indication: Prostate cancer
     Dosage: FREQUENCY : DAILY;?
     Route: 048
     Dates: start: 20230222, end: 202306
  3. ALLOPURINOL [Concomitant]
     Active Substance: ALLOPURINOL
  4. ATORVASTATIN [Concomitant]
     Active Substance: ATORVASTATIN
  5. BETANECHOL [Concomitant]
  6. BICALUTAMIDE [Concomitant]
     Active Substance: BICALUTAMIDE
  7. CARVEDILOL [Concomitant]
     Active Substance: CARVEDILOL
  8. VITAMINS [Concomitant]
     Active Substance: VITAMINS
  9. DIETARY SUPPLEMENT [Concomitant]
     Active Substance: DIETARY SUPPLEMENT
  10. STOOL SOFTENER (DOCUSATE) [Concomitant]
     Active Substance: DOCUSATE
  11. ELIQUIS [Concomitant]
     Active Substance: APIXABAN
  12. ERLEADA [Concomitant]
     Active Substance: APALUTAMIDE
  13. FLOMAX [Concomitant]
     Active Substance: TAMSULOSIN HYDROCHLORIDE
  14. GLUCERNA [Concomitant]
     Active Substance: AMINO ACIDS\DEXTROSE\ELECTROLYTES NOS\SOYBEAN OIL\VITAMINS
  15. ISOSORBIDE [Concomitant]
     Active Substance: ISOSORBIDE
  16. KEFLEX [Concomitant]
     Active Substance: CEPHALEXIN
  17. LASIX [Concomitant]
     Active Substance: FUROSEMIDE
  18. METFORMIN [Concomitant]
     Active Substance: METFORMIN HYDROCHLORIDE
  19. NITROSTAT [Concomitant]
     Active Substance: NITROGLYCERIN
  20. OLOPATADINE [Concomitant]
     Active Substance: OLOPATADINE
  21. PEPCID [Concomitant]
     Active Substance: FAMOTIDINE
  22. SENOKOT [Concomitant]
     Active Substance: SENNOSIDES
  23. NIACIN [Concomitant]
     Active Substance: NIACIN
  24. TYLENOL [Concomitant]
     Active Substance: ACETAMINOPHEN

REACTIONS (1)
  - Hospice care [None]
